FAERS Safety Report 5786390-6 (Version None)
Quarter: 2008Q2

REPORT INFORMATION
  Report Type: 
  Country: None (occurrence: None)
  Receive Date: 20080624
  Receipt Date: 20080616
  Transmission Date: 20081010
  Serious: Yes (Hospitalization)
  Sender: FDA-Public Use
  Company Number: US-ELI_LILLY_AND_COMPANY-US200804007472

PATIENT
  Sex: Female
  Weight: 117.91 kg

DRUGS (19)
  1. BYETTA [Suspect]
     Indication: TYPE 2 DIABETES MELLITUS
     Dosage: 5 UG, 2/D
     Route: 058
     Dates: start: 20050101, end: 20060901
  2. BYETTA [Suspect]
     Dosage: 5 MG, 2/D
     Route: 058
     Dates: start: 20060913
  3. LASIX [Concomitant]
     Dosage: 40 MG, AS NEEDED
  4. LOPRESSOR [Concomitant]
     Dosage: 50 MG, DAILY (1/D)
  5. TOPROL-XL [Concomitant]
     Dosage: 50 MG, DAILY (1/D)
  6. LIPITOR [Concomitant]
     Dosage: 40 MG, DAILY (1/D)
  7. NEURONTIN [Concomitant]
     Dosage: 300 MG, EACH EVENING
  8. STARLIX [Concomitant]
     Indication: TYPE 2 DIABETES MELLITUS
     Dosage: UNK, DAILY (1/D)
  9. ASPIRIN [Concomitant]
     Dosage: 81 MG, DAILY (1/D)
  10. POTASSIUM CHLORIDE [Concomitant]
     Dosage: 200 MG, 2/D
  11. TYLENOL (CAPLET) [Concomitant]
     Dosage: UNK, 2/D
  12. ASCORBIC ACID [Concomitant]
     Dosage: 500 MG, 2/D
  13. COLACE [Concomitant]
     Dosage: 1 D/F, 2/D
  14. SENNA [Concomitant]
     Indication: CONSTIPATION
     Dosage: 1 D/F, 2/D
  15. CALCIUM [Concomitant]
     Dosage: 500 MG, 2/D
  16. GLUCOSAMINE [Concomitant]
     Dosage: UNK, 2/D
  17. CHONDROITIN [Concomitant]
     Dosage: UNK, 2/D
  18. OMEGA 3 [Concomitant]
     Dosage: UNK, AS NEEDED
  19. MULTI-VITAMIN [Concomitant]
     Dosage: UNK, DAILY (1/D)

REACTIONS (3)
  - BLOOD GLUCOSE INCREASED [None]
  - CORONARY ARTERY DISEASE [None]
  - MYOCARDIAL INFARCTION [None]
